FAERS Safety Report 11247560 (Version 2)
Quarter: 2015Q3

REPORT INFORMATION
  Report Type: Spontaneous
  Country: US (occurrence: US)
  Receive Date: 20150708
  Receipt Date: 20150821
  Transmission Date: 20151125
  Serious: Yes (Death, Hospitalization, Other)
  Sender: FDA-Public Use
  Company Number: US-MERCK-1507USA003034

PATIENT
  Sex: Male
  Weight: 58.96 kg

DRUGS (1)
  1. JANUVIA [Suspect]
     Active Substance: SITAGLIPTIN PHOSPHATE
     Indication: TYPE 2 DIABETES MELLITUS
     Dosage: 100 MG, QD
     Route: 048
     Dates: start: 2010, end: 2014

REACTIONS (15)
  - Blood cholesterol increased [Unknown]
  - Pneumonia [Unknown]
  - Pancreatectomy [Unknown]
  - Renal failure [Unknown]
  - Aortic aneurysm [Unknown]
  - Pancreatic duct stenosis [Unknown]
  - Post procedural complication [Fatal]
  - Aortic dilatation [Unknown]
  - Coronary artery disease [Unknown]
  - Pancreatic carcinoma [Unknown]
  - Splenectomy [Unknown]
  - Pancreatitis chronic [Not Recovered/Not Resolved]
  - Cerebrovascular accident [Unknown]
  - Hemiparesis [Unknown]
  - Deep vein thrombosis [Unknown]

NARRATIVE: CASE EVENT DATE: 2010
